FAERS Safety Report 7369283-2 (Version None)
Quarter: 2011Q1

REPORT INFORMATION
  Report Type: 
  Country: None (occurrence: None)
  Receive Date: 20110323
  Receipt Date: 20110317
  Transmission Date: 20110831
  Serious: Yes (Other)
  Sender: FDA-Public Use
  Company Number: A0918681A

PATIENT
  Sex: Female

DRUGS (11)
  1. MAGNESIUM [Concomitant]
  2. POTASSIUM CHLORIDE [Concomitant]
  3. RANITIDINE [Concomitant]
  4. CALCIUM WITH VITAMIN D [Concomitant]
  5. PROAIR HFA [Concomitant]
  6. OMEPRAZOLE [Concomitant]
  7. ADVAIR DISKUS 100/50 [Suspect]
     Indication: ASTHMA
     Dosage: 1PUFF TWICE PER DAY
     Route: 055
  8. CLARITIN [Concomitant]
  9. HYDROCHLOROTHIAZIDE [Concomitant]
  10. VITAMIN D [Concomitant]
  11. MULTI-VITAMIN [Concomitant]

REACTIONS (5)
  - DRUG INEFFECTIVE [None]
  - PYREXIA [None]
  - WHEEZING [None]
  - ASTHMA [None]
  - COUGH [None]
